FAERS Safety Report 16781759 (Version 6)
Quarter: 2020Q4

REPORT INFORMATION
  Report Type: Spontaneous
  Country: IE (occurrence: IE)
  Receive Date: 20190906
  Receipt Date: 20201113
  Transmission Date: 20210113
  Serious: Yes (Other)
  Sender: FDA-Public Use
  Company Number: IE-009507513-1907IRL011770

PATIENT
  Age: 70 Year
  Sex: Female
  Weight: 39 kg

DRUGS (8)
  1. ATORVASTATIN [Concomitant]
     Active Substance: ATORVASTATIN
     Dosage: 20 MILLIGRAM, ONCE DAILY (OD)
     Route: 048
  2. FOSAMAX [Suspect]
     Active Substance: ALENDRONATE SODIUM
     Indication: OSTEOPOROSIS
     Dosage: 70 MG WEEKLY
     Route: 048
     Dates: start: 20061219, end: 20130226
  3. PROLIA [Suspect]
     Active Substance: DENOSUMAB
     Indication: OSTEOPOROSIS
     Dosage: 60 MG EVERY 6 MONTHS
     Route: 058
     Dates: start: 20130418, end: 20180321
  4. NEXIUM I.V. [Concomitant]
     Active Substance: ESOMEPRAZOLE SODIUM
     Dosage: UNK
  5. VENLAFAXINE HYDROCHLORIDE. [Concomitant]
     Active Substance: VENLAFAXINE HYDROCHLORIDE
     Dosage: 37.5MG
  6. ASPIRIN. [Concomitant]
     Active Substance: ASPIRIN
     Dosage: 75 MG, QD
     Route: 048
  7. RABEPRAZOLE SODIUM. [Concomitant]
     Active Substance: RABEPRAZOLE SODIUM
     Dosage: 20 MG ONCE DAILY (OD)
     Route: 048
  8. CALCIUM (UNSPECIFIED) (+) VITAMIN D (UNSPECIFIED) [Concomitant]
     Active Substance: CALCIUM CARBONATE\VITAMIN D
     Dosage: 500 MG/ 400 UNITS, ONE DAILY

REACTIONS (14)
  - Bowen^s disease [Unknown]
  - Underweight [Not Recovered/Not Resolved]
  - Alopecia [Recovered/Resolved]
  - Mastication disorder [Unknown]
  - Osteonecrosis of jaw [Not Recovered/Not Resolved]
  - Adverse drug reaction [Unknown]
  - Gingival bleeding [Unknown]
  - Periodontitis [Not Recovered/Not Resolved]
  - Dental operation [Unknown]
  - Tooth extraction [Unknown]
  - General physical health deterioration [Unknown]
  - Central pain syndrome [Unknown]
  - Emotional distress [Unknown]
  - Impaired healing [Unknown]

NARRATIVE: CASE EVENT DATE: 2009
